FAERS Safety Report 13185561 (Version 3)
Quarter: 2018Q4

REPORT INFORMATION
  Report Type: Spontaneous
  Country: JP (occurrence: JP)
  Receive Date: 20170203
  Receipt Date: 20181004
  Transmission Date: 20190204
  Serious: Yes (Death)
  Sender: FDA-Public Use
  Company Number: JP-MALLINCKRODT-T201700270

PATIENT
  Age: 48 Year
  Sex: Male
  Weight: 62 kg

DRUGS (22)
  1. METHADONE [Suspect]
     Active Substance: METHADONE HYDROCHLORIDE
     Dosage: 10 MG (20 MG DAILY DOSE)
     Route: 048
     Dates: start: 20140410, end: 20140413
  2. LYRICA [Concomitant]
     Active Substance: PREGABALIN
     Indication: ANALGESIC THERAPY
     Dosage: 150 MG,
     Route: 048
     Dates: end: 20130106
  3. LOXOPROFEN [Concomitant]
     Active Substance: LOXOPROFEN
     Indication: ANALGESIC THERAPY
     Dosage: 180 MG,
     Route: 048
  4. MUCOSTA [Concomitant]
     Active Substance: REBAMIPIDE
     Indication: PROPHYLAXIS
     Dosage: 300 MG, UNK
     Route: 048
  5. UBRETID [Concomitant]
     Active Substance: DISTIGMINE BROMIDE
     Indication: PROPHYLAXIS
     Dosage: 5 MG, UNK
     Route: 048
  6. OPSO [Concomitant]
     Active Substance: MORPHINE HYDROCHLORIDE
     Indication: ANALGESIC THERAPY
     Dosage: 5 MG, PRN
     Route: 048
     Dates: start: 20131225
  7. PURSENNID [Concomitant]
     Active Substance: SENNOSIDES A AND B
     Indication: PROPHYLAXIS
     Dosage: 24 MG, UNK
     Route: 048
  8. FLUNITRAZEPAM [Concomitant]
     Active Substance: FLUNITRAZEPAM
     Indication: PROPHYLAXIS
     Dosage: 2 MG,
     Route: 048
  9. LAXOBERON [Concomitant]
     Active Substance: SODIUM PICOSULFATE
     Indication: PROPHYLAXIS
     Dosage: UNK
     Route: 048
  10. CYMBALTA [Concomitant]
     Active Substance: DULOXETINE HYDROCHLORIDE
     Indication: ANALGESIC THERAPY
     Dosage: 20 MG,
     Route: 048
     Dates: start: 20130107
  11. MAGMITT [Concomitant]
     Active Substance: MAGNESIUM OXIDE
     Indication: PROPHYLAXIS
     Dosage: 330 MG, UNK
     Route: 048
  12. METHYCOBAL [Concomitant]
     Active Substance: METHYLCOBALAMIN
     Indication: PROPHYLAXIS
     Dosage: 1500 MCG
     Route: 048
  13. METHADONE [Suspect]
     Active Substance: METHADONE HYDROCHLORIDE
     Dosage: 10 MG (20 MG DAILY DOSE)
     Route: 048
     Dates: start: 20140103, end: 20140115
  14. ZOLPIDEM TARTRATE. [Concomitant]
     Active Substance: ZOLPIDEM TARTRATE
     Indication: PROPHYLAXIS
     Dosage: 10 MG,
     Route: 048
  15. DOGMATYL [Concomitant]
     Active Substance: SULPIRIDE
     Indication: PROPHYLAXIS
     Dosage: UNK
     Route: 048
  16. SEDEKOPAN [Concomitant]
     Indication: PROPHYLAXIS
     Dosage: 1.5 MG, UNK
     Route: 048
  17. URIEF [Concomitant]
     Active Substance: SILODOSIN
     Indication: PROPHYLAXIS
     Dosage: 8 MG,
     Route: 048
  18. METHADONE [Suspect]
     Active Substance: METHADONE HYDROCHLORIDE
     Indication: CANCER PAIN
     Dosage: 5 MG (15 MG DAILY DOSE)
     Route: 048
     Dates: start: 20131225, end: 20140102
  19. METHADONE [Suspect]
     Active Substance: METHADONE HYDROCHLORIDE
     Dosage: 15 MG (30 MG DAILY DOSE)
     Route: 048
     Dates: start: 20140116, end: 20140409
  20. PAZOPANIB HYDROCHLORIDE [Concomitant]
     Active Substance: PAZOPANIB HYDROCHLORIDE
     Indication: MALIGNANT MEDIASTINAL NEOPLASM
     Dosage: UNK
     Route: 051
  21. QUETIAPINE. [Concomitant]
     Active Substance: QUETIAPINE
     Indication: PROPHYLAXIS
     Dosage: 25 MG,
     Route: 048
  22. EPINEPHRINE. [Concomitant]
     Active Substance: EPINEPHRINE
     Indication: MALIGNANT MEDIASTINAL NEOPLASM
     Dosage: UNK
     Route: 051
     Dates: start: 20140413, end: 20140413

REACTIONS (3)
  - Malignant mediastinal neoplasm [Fatal]
  - Somnolence [Unknown]
  - Urinary retention [Recovered/Resolved]

NARRATIVE: CASE EVENT DATE: 20140106
